FAERS Safety Report 7282426-4 (Version None)
Quarter: 2011Q1

REPORT INFORMATION
  Report Type: 
  Country: None (occurrence: None)
  Receive Date: 20110209
  Receipt Date: 20110203
  Transmission Date: 20110831
  Serious: Yes (Hospitalization)
  Sender: FDA-Public Use
  Company Number: US-BRISTOL-MYERS SQUIBB COMPANY-15514201

PATIENT
  Age: 49 Year
  Sex: Female
  Weight: 58 kg

DRUGS (13)
  1. DARBEPOETIN ALFA [Concomitant]
     Dosage: 1DF= 200 MCG/0.4ML SYR ALB/F,INJ UNDER SKINLAST THERAPY DATES22JAN11
  2. FENTANYL-100 [Concomitant]
     Dosage: 1 DF: 1 PATCH 100MCG Q 72 HRS,75 MCG/HR
     Route: 062
  3. ONDANSETRON HCL [Concomitant]
     Dosage: ONE-HALF TAB(4MG) Q8HRS
  4. OXYCODONE HCL [Concomitant]
     Dosage: 1 DF: 3 TABS PRN 5 MG/APAP 325 MG,Q 6HRS
  5. DASATIMIB [Suspect]
     Indication: NON-SMALL CELL LUNG CANCER STAGE IV
     Dosage: INTERRUPTED ON 20JAN11;RECEIVED 20MG BID PO LOT NO:9B44390 EXP DATE:MAR2012,23JAN-31JAN11
     Route: 048
     Dates: start: 20101229
  6. BISACODYL SUPPOSITORY [Concomitant]
     Dosage: 1 DF: 2 SUPPOSITORY 10MG RTL SUPP QD
  7. RISPERIDONE [Concomitant]
     Dosage: 2 MG TAB
  8. DOCUSATE SODIUM + SENNA [Concomitant]
     Dosage: TAB PRN,DOCUSATE SOD 50 MG
  9. NORTRIPTYLINE HCL [Concomitant]
     Dosage: 25 MG CAP
  10. PROMETHAZINE HCL [Concomitant]
     Dosage: 1 DF: 25MG,ONE-HALF TAB 12.5MG Q6HRS 25MG RTL 1 SUPPOSITORY QD
  11. SIMETHICONE [Concomitant]
     Dosage: PRN CHEWABLE TAB,Q6HRS
     Route: 048
  12. MAGNESIUM OXIDE [Concomitant]
     Dosage: TAB
  13. MEGESTROL ACETATE [Concomitant]
     Dosage: MEGESTROL SUSP 40MG/ML OML 800MG(20ML)QD

REACTIONS (7)
  - FATIGUE [None]
  - VISION BLURRED [None]
  - NAUSEA [None]
  - VOMITING [None]
  - ANAEMIA [None]
  - MUSCULAR WEAKNESS [None]
  - DEHYDRATION [None]
